FAERS Safety Report 7244835-9 (Version None)
Quarter: 2011Q1

REPORT INFORMATION
  Report Type: 
  Country: None (occurrence: None)
  Receive Date: 20110126
  Receipt Date: 20110122
  Transmission Date: 20110831
  Serious: No
  Sender: FDA-Public Use
  Company Number: US-PFIZER INC-2010175515

PATIENT
  Age: 81 Year
  Sex: Female

DRUGS (1)
  1. CELEBREX [Suspect]
     Dosage: UNK

REACTIONS (4)
  - INSOMNIA [None]
  - DRY MOUTH [None]
  - DYSGEUSIA [None]
  - SKIN ODOUR ABNORMAL [None]
